FAERS Safety Report 6272639-2 (Version None)
Quarter: 2009Q3

REPORT INFORMATION
  Report Type: 
  Country: None (occurrence: None)
  Receive Date: 20090713
  Receipt Date: 20090216
  Transmission Date: 20100115
  Serious: Yes (Other)
  Sender: FDA-Public Use
  Company Number: 614574

PATIENT
  Sex: Female

DRUGS (2)
  1. BONIVA [Suspect]
     Dates: start: 20050901
  2. FOSAMAX [Suspect]
     Dates: start: 20031201, end: 20050601

REACTIONS (3)
  - EMOTIONAL DISTRESS [None]
  - OSTEONECROSIS [None]
  - PAIN [None]
